FAERS Safety Report 5174274-6 (Version None)
Quarter: 2006Q4

REPORT INFORMATION
  Report Type: 
  Country: None (occurrence: None)
  Receive Date: 20061206
  Receipt Date: 20061121
  Transmission Date: 20070319
  Serious: Yes (Hospitalization)
  Sender: FDA-Public Use
  Company Number: 232427

PATIENT
  Age: 74 Year
  Sex: Male
  Weight: 83 kg

DRUGS (13)
  1. AVASTIN [Suspect]
     Indication: COLORECTAL CANCER METASTATIC
     Dosage: 465 MG, Q2W, INTRAVENOUS
     Route: 042
     Dates: start: 20060329, end: 20061101
  2. CETUXIMAB (CETUXIMAB) [Suspect]
     Indication: COLORECTAL CANCER METASTATIC
     Dosage: 538 MG, 1/WEEK, INTRAVENOUS
     Route: 042
     Dates: start: 20060329, end: 20061101
  3. FLUOROURACIL [Suspect]
     Indication: COLORECTAL CANCER METASTATIC
     Dosage: SEE IMAGE
     Route: 040
     Dates: start: 20060329, end: 20061101
  4. FLUOROURACIL [Suspect]
     Indication: COLORECTAL CANCER METASTATIC
     Dosage: SEE IMAGE
     Route: 040
     Dates: start: 20060329, end: 20061101
  5. LEUCOVORIN CALCIUM [Suspect]
     Indication: COLORECTAL CANCER METASTATIC
     Dosage: 360 MG, Q2W, INTRAVENOUS
     Route: 042
     Dates: start: 20060329, end: 20061101
  6. CORTISONE (CORTISONE ACETATE) [Concomitant]
  7. FLUDROCORTISONE (FLUDROCORTISONE ACETATE) [Concomitant]
  8. COUMADIN [Concomitant]
  9. PROSCAR [Concomitant]
  10. CIPRO [Concomitant]
  11. NEXIUM [Concomitant]
  12. VITAMIN B-100 (VITAMIN B COMPLEX) [Concomitant]
  13. ASPIRIN [Concomitant]

REACTIONS (7)
  - ANAEMIA [None]
  - BLOOD CHLORIDE INCREASED [None]
  - BLOOD POTASSIUM DECREASED [None]
  - DEPRESSION [None]
  - RASH ERYTHEMATOUS [None]
  - SMALL INTESTINAL OBSTRUCTION [None]
  - WHITE BLOOD CELL COUNT DECREASED [None]
